FAERS Safety Report 6244039-2 (Version None)
Quarter: 2009Q2

REPORT INFORMATION
  Report Type: 
  Country: None (occurrence: None)
  Receive Date: 20090625
  Receipt Date: 20070921
  Transmission Date: 20091009
  Serious: Yes (Other)
  Sender: FDA-Public Use
  Company Number: US-ASTRAZENECA-2007UW19108

PATIENT
  Age: 16268 Day
  Sex: Female
  Weight: 111.6 kg

DRUGS (18)
  1. SEROQUEL [Suspect]
     Dosage: 25-300 MG THREE TIMES A DAY, 300 MG TWICE A DAY AND 400 MG AT NIGHT
     Route: 048
     Dates: start: 20010316
  2. ULTRAM [Concomitant]
     Indication: PELVIC PAIN
     Dates: start: 20030331
  3. ZONEGRAN [Concomitant]
     Route: 048
     Dates: start: 20030903
  4. PREMARIN [Concomitant]
     Dates: start: 19940718
  5. THEOPHYLLINE [Concomitant]
     Dosage: 300 MG
     Dates: start: 20040813
  6. ABILIFY [Concomitant]
     Route: 048
     Dates: start: 20040813
  7. LEXAPRO [Concomitant]
     Route: 048
  8. SONATA [Concomitant]
     Route: 048
     Dates: start: 20040813
  9. KLONOPIN [Concomitant]
     Dates: start: 19970324
  10. CELEXA [Concomitant]
     Dates: start: 20000926, end: 20060825
  11. LEVOXYL [Concomitant]
     Indication: HYPOTHYROIDISM
     Dosage: 0.15- 0.2 MG EVERY DAY
     Route: 048
     Dates: start: 20010305
  12. POTASSIUM CHLORIDE [Concomitant]
     Dosage: 20 MEQ EVERY DAY, TWICE A DAY
     Dates: start: 20030331
  13. LASIX [Concomitant]
     Dosage: 40-80 MG TWICE A DAY
     Route: 048
     Dates: start: 20000523
  14. PRILOSEC [Concomitant]
     Dates: start: 19970324
  15. HALDOL [Concomitant]
     Dates: start: 20060926
  16. FLEXERIL [Concomitant]
     Dates: start: 20000622
  17. TRAZODONE HCL [Concomitant]
     Dates: start: 20000926
  18. EFFEXOR [Concomitant]
     Dosage: 150 - 300 MG TWICE A DAY
     Dates: start: 20070829

REACTIONS (3)
  - DIABETES MELLITUS [None]
  - NEUROPATHY PERIPHERAL [None]
  - TYPE 2 DIABETES MELLITUS [None]
